FAERS Safety Report 4849493-6 (Version None)
Quarter: 2005Q4

REPORT INFORMATION
  Report Type: 
  Country: None (occurrence: None)
  Receive Date: 20051207
  Receipt Date: 20051125
  Transmission Date: 20060501
  Serious: Yes (Hospitalization)
  Sender: FDA-Public Use
  Company Number: 2005161947

PATIENT
  Age: 12 Year
  Sex: Male
  Weight: 12.8 kg

DRUGS (2)
  1. GENOTROPIN [Suspect]
     Indication: HYPOPITUITARISM
     Dosage: 0.8 MG (0.8 MG, DAILY, EVERY DAY); 0.4 MG (0.4 MG, DAILY, EVERY DAY)
     Dates: start: 20051116, end: 20051124
  2. GENOTROPIN [Suspect]
     Indication: HYPOPITUITARISM
     Dosage: 0.8 MG (0.8 MG, DAILY, EVERY DAY); 0.4 MG (0.4 MG, DAILY, EVERY DAY)
     Dates: start: 20051116, end: 20051124

REACTIONS (2)
  - HEADACHE [None]
  - VOMITING [None]
